FAERS Safety Report 8379527-6 (Version None)
Quarter: 2012Q2

REPORT INFORMATION
  Report Type: 
  Country: None (occurrence: None)
  Receive Date: 20120523
  Receipt Date: 20120518
  Transmission Date: 20120825
  Serious: Yes (Congenital Anomaly)
  Sender: FDA-Public Use
  Company Number: US-JNJFOC-20111107543

PATIENT
  Sex: Male

DRUGS (4)
  1. TOPAMAX [Suspect]
     Route: 064
     Dates: start: 20030827, end: 20040722
  2. TOPAMAX [Suspect]
     Indication: MIGRAINE
     Route: 064
  3. ZOFRAN [Suspect]
     Indication: FOETAL EXPOSURE DURING PREGNANCY
     Route: 064
  4. LEXAPRO [Suspect]
     Indication: FOETAL EXPOSURE DURING PREGNANCY
     Route: 064

REACTIONS (2)
  - GROWTH RETARDATION [None]
  - HYPOSPADIAS [None]
